FAERS Safety Report 8407567-7 (Version None)
Quarter: 2012Q2

REPORT INFORMATION
  Report Type: 
  Country: None (occurrence: None)
  Receive Date: 20120604
  Receipt Date: 20120523
  Transmission Date: 20120825
  Serious: Yes (Other)
  Sender: FDA-Public Use
  Company Number: US-JNJFOC-20120519626

PATIENT

DRUGS (1)
  1. RISPERIDONE [Suspect]
     Indication: DEPRESSION
     Route: 065

REACTIONS (1)
  - DRUG ABUSE [None]
